FAERS Safety Report 11925667 (Version 2)
Quarter: 2016Q1

REPORT INFORMATION
  Report Type: Spontaneous
  Country: CN (occurrence: CN)
  Receive Date: 20160118
  Receipt Date: 20160119
  Transmission Date: 20160526
  Serious: Yes (Hospitalization, Other)
  Sender: FDA-Public Use
  Company Number: PHHY2016CN004786

PATIENT
  Age: 28 Year
  Sex: Male

DRUGS (13)
  1. CICLOSPORIN [Suspect]
     Active Substance: CYCLOSPORINE
     Indication: RENAL TRANSPLANT
     Dosage: 150 MG, BID
     Route: 048
  2. PREDNISONE. [Suspect]
     Active Substance: PREDNISONE
     Indication: RENAL TRANSPLANT
     Dosage: 10 MG, QD
     Route: 048
  3. GANCICLOVIR. [Suspect]
     Active Substance: GANCICLOVIR
     Indication: PNEUMONIA CYTOMEGALOVIRAL
     Dosage: 250 MG, Q12H
     Route: 042
  4. SULFANILAMIDE [Suspect]
     Active Substance: SULFANILAMIDE
     Indication: PNEUMONIA CYTOMEGALOVIRAL
     Route: 065
  5. NIFEDIPINE. [Concomitant]
     Active Substance: NIFEDIPINE
     Indication: HYPERTENSION
     Dosage: 30 MG, QD
     Route: 048
  6. MYCOPHENOLIC ACID. [Suspect]
     Active Substance: MYCOPHENOLIC ACID
     Indication: RENAL TRANSPLANT
     Dosage: 1080 MG, BID
     Route: 048
  7. GANCICLOVIR. [Suspect]
     Active Substance: GANCICLOVIR
     Indication: PNEUMOCYSTIS JIROVECII PNEUMONIA
     Dosage: 250 MG, QD
     Route: 042
  8. CICLOSPORIN [Suspect]
     Active Substance: CYCLOSPORINE
     Indication: IMMUNOSUPPRESSANT DRUG THERAPY
     Dosage: 75 MG, Q12H
     Route: 048
  9. MYCOPHENOLIC ACID. [Suspect]
     Active Substance: MYCOPHENOLIC ACID
     Indication: IMMUNOSUPPRESSANT DRUG THERAPY
  10. GANCICLOVIR. [Suspect]
     Active Substance: GANCICLOVIR
     Dosage: 250 MG, TID
     Route: 048
  11. PREDNISONE. [Suspect]
     Active Substance: PREDNISONE
     Indication: IMMUNOSUPPRESSANT DRUG THERAPY
  12. GANCICLOVIR. [Suspect]
     Active Substance: GANCICLOVIR
     Dosage: 500 MG, TID
     Route: 048
  13. SULFANILAMIDE [Suspect]
     Active Substance: SULFANILAMIDE
     Indication: PNEUMOCYSTIS JIROVECII PNEUMONIA

REACTIONS (10)
  - Nasopharyngitis [Unknown]
  - Rash [Unknown]
  - Bone marrow failure [Unknown]
  - Pyrexia [Unknown]
  - Pneumonia cytomegaloviral [Recovering/Resolving]
  - Renal impairment [Recovering/Resolving]
  - Pneumocystis jirovecii pneumonia [Recovering/Resolving]
  - Asphyxia [Recovering/Resolving]
  - Dyspnoea [Unknown]
  - Kidney transplant rejection [Unknown]
